FAERS Safety Report 10420046 (Version 3)
Quarter: 2014Q3

REPORT INFORMATION
  Report Type: Report from Study
  Country: US (occurrence: US)
  Receive Date: 20140829
  Receipt Date: 20140909
  Transmission Date: 20150326
  Serious: Yes (Hospitalization)
  Sender: FDA-Public Use
  Company Number: US-ACTELION-A-NJ2014-98804

PATIENT
  Age: 81 Year
  Sex: Female

DRUGS (13)
  1. SODIUM BICARBONATE. [Concomitant]
     Active Substance: SODIUM BICARBONATE
  2. OMEPRAZOLE. [Concomitant]
     Active Substance: OMEPRAZOLE
  3. ALLOPURINOL. [Concomitant]
     Active Substance: ALLOPURINOL
  4. VELETRI [Suspect]
     Active Substance: EPOPROSTENOL
     Dosage: 14.2 NG/KG, UNK
     Route: 042
     Dates: start: 20131209
  5. AMLODIPINE [Concomitant]
     Active Substance: AMLODIPINE BESYLATE
  6. COLESTIPOL [Concomitant]
     Active Substance: COLESTIPOL
  7. FUROSEMIDE. [Concomitant]
     Active Substance: FUROSEMIDE
  8. WARFARIN [Concomitant]
     Active Substance: WARFARIN
  9. VITAMIN D [Concomitant]
     Active Substance: CHOLECALCIFEROL
  10. ATORVASTATIN [Concomitant]
     Active Substance: ATORVASTATIN
  11. METOPROLOL [Concomitant]
     Active Substance: METOPROLOL
  12. VELETRI [Suspect]
     Active Substance: EPOPROSTENOL
     Indication: PULMONARY HYPERTENSION
     Dosage: 16 NG/KG, PER MIN
     Route: 042
     Dates: start: 20131202
  13. FERROUS SULFATE [Concomitant]
     Active Substance: FERROUS SULFATE\FERROUS SULFATE, DRIED

REACTIONS (4)
  - Fluid overload [Recovered/Resolved]
  - Blood urea increased [Recovered/Resolved]
  - Renal disorder [Recovered/Resolved]
  - Blood creatinine increased [Recovered/Resolved]

NARRATIVE: CASE EVENT DATE: 201405
